FAERS Safety Report 8108202-8 (Version None)
Quarter: 2012Q1

REPORT INFORMATION
  Report Type: 
  Country: None (occurrence: None)
  Receive Date: 20120202
  Receipt Date: 20120123
  Transmission Date: 20120608
  Serious: Yes (Hospitalization)
  Sender: FDA-Public Use
  Company Number: US-JNJFOC-20120110700

PATIENT
  Age: 63 Year
  Sex: Female
  Weight: 121 kg

DRUGS (9)
  1. IMODIUM [Suspect]
     Route: 048
  2. OMEPRAZOLE [Concomitant]
  3. DRAMAMINE [Suspect]
     Route: 048
     Dates: start: 20120114, end: 20120114
  4. DRAMAMINE [Suspect]
     Indication: PRODUCT USED FOR UNKNOWN INDICATION
     Route: 048
     Dates: start: 20120113, end: 20120113
  5. ACETAMINOPHEN [Suspect]
     Indication: PRODUCT USED FOR UNKNOWN INDICATION
     Route: 048
     Dates: start: 20120113
  6. IMODIUM [Suspect]
     Indication: PRODUCT USED FOR UNKNOWN INDICATION
     Route: 048
  7. ACETAMINOPHEN [Suspect]
     Route: 048
  8. ZOLPIDEM [Concomitant]
  9. CYMBALTA [Concomitant]

REACTIONS (7)
  - NAUSEA [None]
  - INTENTIONAL SELF-INJURY [None]
  - ABDOMINAL PAIN [None]
  - TRANSAMINASES INCREASED [None]
  - VOMITING [None]
  - MULTIPLE DRUG OVERDOSE INTENTIONAL [None]
  - PROTHROMBIN TIME PROLONGED [None]
